FAERS Safety Report 14635322 (Version 5)
Quarter: 2020Q3

REPORT INFORMATION
  Report Type: Report from Study
  Country: KR (occurrence: KR)
  Receive Date: 20180314
  Receipt Date: 20180510
  Transmission Date: 20201104
  Serious: Yes (Hospitalization)
  Sender: FDA-Public Use
  Company Number: KR-ASTRAZENECA-2018SE29486

PATIENT
  Age: 714 Month
  Sex: Male

DRUGS (26)
  1. DURVALUMAB. [Suspect]
     Active Substance: DURVALUMAB
     Indication: HEPATOCELLULAR CARCINOMA
     Dosage: 1500.0MG ONCE/SINGLE ADMINISTRATION
     Route: 042
     Dates: start: 20180208, end: 20180208
  2. METOCLOPRAMIDE. [Concomitant]
     Active Substance: METOCLOPRAMIDE
     Indication: NAUSEA
     Dosage: 10.0MG AS REQUIRED
     Route: 042
     Dates: start: 20180308, end: 20180309
  3. SILYMARIN [Concomitant]
     Active Substance: DIETARY SUPPLEMENT\HERBALS\MILK THISTLE
     Indication: BLOOD BILIRUBIN INCREASED
     Route: 048
     Dates: start: 20180227
  4. TREMELIMUMAB. [Suspect]
     Active Substance: TREMELIMUMAB
     Indication: HEPATOCELLULAR CARCINOMA
     Dosage: 300.0MG ONCE/SINGLE ADMINISTRATION
     Route: 042
     Dates: start: 20180208, end: 20180208
  5. CADUET [Concomitant]
     Active Substance: AMLODIPINE BESYLATE\ATORVASTATIN CALCIUM
     Indication: HYPERTENSION
     Route: 048
     Dates: end: 20180227
  6. METOCLOPRAMIDE. [Concomitant]
     Active Substance: METOCLOPRAMIDE
     Indication: NAUSEA
     Dosage: 5.0MG AS REQUIRED
     Route: 048
     Dates: start: 20180314
  7. CIPROFLOXACIN. [Concomitant]
     Active Substance: CIPROFLOXACIN
     Indication: INFECTION
     Route: 048
     Dates: start: 20180307
  8. ESOMEPRAZOLE. [Concomitant]
     Active Substance: ESOMEPRAZOLE MAGNESIUM
     Indication: ABDOMINAL PAIN UPPER
     Dosage: 40.0MG AS REQUIRED
     Route: 042
     Dates: start: 20180306, end: 20180307
  9. LACTICARE HC(R) [Concomitant]
     Indication: PRURITUS
     Dosage: 118.0ML AS REQUIRED
     Route: 061
     Dates: start: 20180314
  10. CIPROFLOXACIN. [Concomitant]
     Active Substance: CIPROFLOXACIN
     Indication: INFECTION
     Route: 048
     Dates: start: 20180302, end: 20180305
  11. BEARSE(R) [Concomitant]
     Indication: DYSPEPSIA
     Dosage: 1.0DF AS REQUIRED
     Route: 048
     Dates: end: 20180227
  12. HERBAL GASTROINTESTINAL PREPARATION NOS [Concomitant]
     Indication: DYSPEPSIA
     Dosage: 30.0MG AS REQUIRED
     Route: 048
     Dates: end: 20180227
  13. CODENAL [Concomitant]
     Indication: COUGH
     Route: 048
     Dates: start: 20180219, end: 20180222
  14. BRUFEN [Concomitant]
     Active Substance: IBUPROFEN
     Indication: PYREXIA
     Route: 048
     Dates: start: 20180219, end: 20180219
  15. BIPHERAN [Concomitant]
     Indication: ASPARTATE AMINOTRANSFERASE INCREASED
     Route: 048
     Dates: start: 20180221, end: 20180227
  16. METOCLOPRAMIDE. [Concomitant]
     Active Substance: METOCLOPRAMIDE
     Indication: NAUSEA
     Dosage: 10.0MG AS REQUIRED
     Route: 042
     Dates: start: 20180311, end: 20180313
  17. CHLORPHENIRAMINE. [Concomitant]
     Active Substance: CHLORPHENIRAMINE
     Indication: RASH
     Route: 048
     Dates: start: 20180302
  18. URSODEOXYCHOLIC ACID [Concomitant]
     Active Substance: URSODIOL
     Indication: ASPARTATE AMINOTRANSFERASE INCREASED
     Route: 048
  19. ESOMEPRAZOLE. [Concomitant]
     Active Substance: ESOMEPRAZOLE MAGNESIUM
     Indication: ABDOMINAL PAIN UPPER
     Dosage: 40.0MG AS REQUIRED
     Route: 048
     Dates: end: 20180227
  20. ESOMEPRAZOLE. [Concomitant]
     Active Substance: ESOMEPRAZOLE MAGNESIUM
     Indication: ABDOMINAL PAIN UPPER
     Dosage: 20.0MG AS REQUIRED
     Route: 048
     Dates: start: 20180302, end: 20180305
  21. ALMAGEL F [Concomitant]
     Indication: ABDOMINAL PAIN UPPER
     Dosage: 15.0ML AS REQUIRED
     Route: 048
     Dates: start: 20180208, end: 20180227
  22. NOVASC [Concomitant]
     Indication: HYPERTENSION
     Route: 048
     Dates: start: 20180222
  23. METOCLOPRAMIDE. [Concomitant]
     Active Substance: METOCLOPRAMIDE
     Indication: NAUSEA
     Dosage: 5.0MG AS REQUIRED
     Route: 048
     Dates: start: 20180225, end: 20180227
  24. BEARSE(R) [Concomitant]
     Indication: DYSPEPSIA
     Dosage: 1.0DF AS REQUIRED
     Route: 048
     Dates: start: 20180302
  25. REBAMIPIDE [Concomitant]
     Active Substance: REBAMIPIDE
     Indication: GASTRITIS
     Route: 048
     Dates: start: 20180227, end: 20180305
  26. LACTICARE HC(R) [Concomitant]
     Indication: PRURITUS
     Dosage: 118.0ML AS REQUIRED
     Route: 061
     Dates: start: 20180302, end: 20180305

REACTIONS (1)
  - Liver function test abnormal [Recovered/Resolved]

NARRATIVE: CASE EVENT DATE: 20180306
